FAERS Safety Report 18350548 (Version 4)
Quarter: 2021Q1

REPORT INFORMATION
  Report Type: Report from Study
  Country: US (occurrence: US)
  Receive Date: 20201006
  Receipt Date: 20210106
  Transmission Date: 20210419
  Serious: Yes (Hospitalization)
  Sender: FDA-Public Use
  Company Number: NVSC2020US265818

PATIENT
  Age: 59 Year
  Sex: Female
  Weight: 69.4 kg

DRUGS (4)
  1. TREPROSTINIL. [Suspect]
     Active Substance: TREPROSTINIL
     Dosage: UNK (167 (NG/KG/MIN)
     Route: 065
  2. ADCIRCA [Concomitant]
     Active Substance: TADALAFIL
     Indication: PULMONARY ARTERIAL HYPERTENSION
     Dosage: UNK
     Route: 065
  3. OPSUMIT [Concomitant]
     Active Substance: MACITENTAN
     Indication: PULMONARY ARTERIAL HYPERTENSION
     Dosage: UNK
     Route: 065
  4. TREPROSTINIL. [Suspect]
     Active Substance: TREPROSTINIL
     Indication: PULMONARY ARTERIAL HYPERTENSION
     Dosage: 158 (NG/KG/MIN), CONT
     Route: 042
     Dates: start: 20190423

REACTIONS (9)
  - Acute respiratory failure [Unknown]
  - Loss of consciousness [Unknown]
  - Tachycardia [Unknown]
  - Cardiac arrest [Unknown]
  - Abdominal distension [Unknown]
  - Device malfunction [Unknown]
  - Heart rate increased [Unknown]
  - Dyspnoea [Unknown]
  - Incorrect product dosage form administered [Unknown]

NARRATIVE: CASE EVENT DATE: 20201215
